FAERS Safety Report 13972143 (Version 1)
Quarter: 2017Q3

REPORT INFORMATION
  Report Type: Spontaneous
  Country: US (occurrence: None)
  Receive Date: 20170914
  Receipt Date: 20170914
  Transmission Date: 20171128
  Serious: No
  Sender: FDA-Public Use
  Company Number: None

PATIENT
  Age: 44 Year
  Sex: Female

DRUGS (1)
  1. METHOTREXATE 25 MG/ML NOVAPLUS [Suspect]
     Active Substance: METHOTREXATE SODIUM
     Indication: RHEUMATOID ARTHRITIS
     Dates: start: 20170601

REACTIONS (3)
  - Dyspareunia [None]
  - Vulvovaginal discomfort [None]
  - Vulvovaginal burning sensation [None]

NARRATIVE: CASE EVENT DATE: 20170912
